FAERS Safety Report 6012355-5 (Version None)
Quarter: 2009Q1

REPORT INFORMATION
  Report Type: 
  Country: None (occurrence: None)
  Receive Date: 20081218
  Receipt Date: 20080904
  Transmission Date: 20090719
  Serious: No
  Sender: FDA-Public Use
  Company Number: US-ASTRAZENECA-2008UW18201

PATIENT
  Sex: Female

DRUGS (4)
  1. SYMBICORT [Suspect]
     Dosage: 160/4.5 UG, 2 PUFFS EVERY 12 HOURS
     Route: 055
     Dates: start: 20080501
  2. PRO-AIR [Concomitant]
  3. SINGULAIR [Concomitant]
  4. ALLEGRA [Concomitant]

REACTIONS (2)
  - DRUG INEFFECTIVE [None]
  - MEDICATION ERROR [None]
